FAERS Safety Report 4652120-4 (Version None)
Quarter: 2005Q2

REPORT INFORMATION
  Report Type: 
  Country: None (occurrence: None)
  Receive Date: 20050502
  Receipt Date: 20050502
  Transmission Date: 20051028
  Serious: No
  Sender: FDA-Public Use
  Company Number: None

PATIENT
  Sex: Male
  Weight: 67.3 kg

DRUGS (7)
  1. ALLOPURINOL [Suspect]
     Indication: ACUTE LYMPHOCYTIC LEUKAEMIA
     Dosage: 300 MG PO QD ON DAYS 1-14
     Route: 048
     Dates: start: 20050211
  2. CYCLOPHOSPHAMIDE [Suspect]
     Dosage: SEE IMAGE
     Route: 042
  3. DAUNORUBICIN [Suspect]
     Dosage: 80 MG/M2/DAY X 3 DAYS IV ON DAYS 1, 2 , 3.  NOTE IF PT. IS 6 0 YRS. OR OLDER , DAUNORUBICIN 60 MG/M2
     Route: 042
  4. VINCRISTINE [Suspect]
     Dosage: SEE IMAGE
     Route: 042
  5. DEXAMETHASONE [Suspect]
     Dosage: SEE IMAGE
     Route: 048
  6. L-ASPARAGINASE [Suspect]
     Dosage: SEE IMAGE
     Route: 058
  7. G-CSF [Suspect]
     Dosage: 5MCG/KG/DAY SC  SEE IMAGE

REACTIONS (2)
  - CHROMOSOME ANALYSIS ABNORMAL [None]
  - PNEUMONIA [None]
